FAERS Safety Report 6775682-X (Version None)
Quarter: 2010Q2

REPORT INFORMATION
  Report Type: 
  Country: None (occurrence: None)
  Receive Date: 20100617
  Receipt Date: 20100610
  Transmission Date: 20101027
  Serious: Yes (Hospitalization)
  Sender: FDA-Public Use
  Company Number: BR-ABBOTT-10P-020-0628993-00

PATIENT
  Sex: Male
  Weight: 78 kg

DRUGS (4)
  1. HUMIRA [Suspect]
     Indication: RHEUMATOID ARTHRITIS
     Route: 058
     Dates: end: 20091201
  2. HUMIRA [Suspect]
     Route: 058
     Dates: start: 20100101, end: 20100201
  3. HUMIRA [Suspect]
     Route: 058
     Dates: start: 20100201, end: 20100301
  4. HUMIRA [Suspect]
     Route: 058
     Dates: start: 20100401

REACTIONS (4)
  - ARTHRALGIA [None]
  - GASTRIC MUCOSAL LESION [None]
  - PAIN [None]
  - RHEUMATOID ARTHRITIS [None]
